FAERS Safety Report 9314288 (Version 1)
Quarter: 2013Q2

REPORT INFORMATION
  Report Type: Spontaneous
  Country: CA (occurrence: CA)
  Receive Date: 20130529
  Receipt Date: 20130529
  Transmission Date: 20140414
  Serious: Yes (Other)
  Sender: FDA-Public Use
  Company Number: PHHY2013CA051714

PATIENT
  Age: 39 Year
  Sex: Female

DRUGS (4)
  1. LAMISIL [Suspect]
     Dosage: 1 DF (250MG), DAILY
     Route: 048
  2. D TABS [Concomitant]
     Dosage: UNK UKN, UNK
  3. IMOVANE [Concomitant]
     Dosage: UNK UKN, UNK
  4. WELLBUTRIN XL [Concomitant]
     Dosage: UNK UKN, UNK

REACTIONS (8)
  - Tachycardia [Recovered/Resolved]
  - Chest discomfort [Recovered/Resolved]
  - Gastrooesophageal reflux disease [Recovered/Resolved]
  - Insomnia [Recovered/Resolved]
  - Anxiety [Recovered/Resolved]
  - Abdominal pain upper [Recovered/Resolved]
  - Depressive symptom [Recovered/Resolved]
  - Headache [Recovered/Resolved]
